FAERS Safety Report 19930256 (Version 3)
Quarter: 2021Q4

REPORT INFORMATION
  Report Type: Spontaneous
  Country: BR (occurrence: BR)
  Receive Date: 20211007
  Receipt Date: 20211204
  Transmission Date: 20220303
  Serious: Yes (Hospitalization, Other)
  Sender: FDA-Public Use
  Company Number: BR-SA-SAC20210922001177

PATIENT
  Age: 39 Year
  Sex: Female
  Weight: 75 kg

DRUGS (4)
  1. APIDRA SOLOSTAR [Suspect]
     Active Substance: INSULIN GLULISINE
     Indication: Type 1 diabetes mellitus
     Dosage: UNK (USED DAILY AND DEPENDING ON THE GLYCEMIC VALUE, MORE THAN ONCE A DAY)
     Route: 058
     Dates: start: 1990
  2. APIDRA SOLOSTAR [Suspect]
     Active Substance: INSULIN GLULISINE
     Dosage: BETWEEN 120 AND 390 BLOOD GLUCOSE, THE DOSAGE ROSE EVERY 2 UNITS
     Route: 058
     Dates: start: 202009
  3. PURAN [Concomitant]
     Active Substance: LEVOTHYROXINE SODIUM
     Indication: Hypothyroidism
     Dosage: 125 MG
     Route: 065
     Dates: start: 1992
  4. TRESIBA [Concomitant]
     Active Substance: INSULIN DEGLUDEC
     Indication: Diabetes mellitus
     Dosage: 26IU

REACTIONS (4)
  - Coma [Recovered/Resolved]
  - Hyperglycaemia [Recovered/Resolved]
  - Fear of death [Unknown]
  - Product dose omission issue [Unknown]
